FAERS Safety Report 7379146-4 (Version None)
Quarter: 2011Q1

REPORT INFORMATION
  Report Type: 
  Country: None (occurrence: None)
  Receive Date: 20110328
  Receipt Date: 20110315
  Transmission Date: 20110831
  Serious: Yes (Other)
  Sender: FDA-Public Use
  Company Number: PHHY2011DE21721

PATIENT
  Sex: Male

DRUGS (8)
  1. NOVALGIN [Suspect]
     Indication: PAIN
     Dosage: UNK
     Dates: start: 20110301
  2. METRONIDAZOLE [Concomitant]
     Indication: INFECTION PROPHYLAXIS
     Dosage: UNK
     Dates: start: 20110101
  3. CERTICAN [Suspect]
     Indication: GRAFT VERSUS HOST DISEASE
     Dosage: 1.5MG THRICE  DAILY
     Dates: start: 20110201
  4. CORTISOL [Concomitant]
     Indication: IMMUNOSUPPRESSION
     Dosage: UNK
     Dates: start: 20110101
  5. COTRIM [Concomitant]
     Indication: INFECTION PROPHYLAXIS
     Dosage: UNK
     Dates: start: 20110101
  6. IBUPROFEN [Concomitant]
     Indication: PAIN
     Dosage: UNK
     Dates: start: 20110301
  7. ACYCLOVIR [Concomitant]
     Indication: INFECTION PROPHYLAXIS
     Dosage: UNK
     Dates: start: 20110101, end: 20110314
  8. FORTUM [Concomitant]
     Indication: INFECTION PROPHYLAXIS
     Dosage: UNK
     Dates: start: 20110301

REACTIONS (1)
  - DERMATITIS BULLOUS [None]
